FAERS Safety Report 24927039 (Version 1)
Quarter: 2025Q1

REPORT INFORMATION
  Report Type: Spontaneous
  Country: US (occurrence: US)
  Receive Date: 20250205
  Receipt Date: 20250205
  Transmission Date: 20250409
  Serious: Yes (Other)
  Sender: JOHNSON AND JOHNSON
  Company Number: US-JNJFOC-20241215137

PATIENT
  Age: 50 Year
  Sex: Male
  Weight: 95.25 kg

DRUGS (5)
  1. INVEGA [Suspect]
     Active Substance: PALIPERIDONE
     Indication: Delusional disorder, unspecified type
     Route: 048
  2. INVEGA [Suspect]
     Active Substance: PALIPERIDONE
     Route: 048
  3. INVEGA [Suspect]
     Active Substance: PALIPERIDONE
     Route: 048
  4. INVEGA [Suspect]
     Active Substance: PALIPERIDONE
     Route: 048
  5. RANITIDINE [Concomitant]
     Active Substance: RANITIDINE

REACTIONS (5)
  - Drug abuse [Unknown]
  - Off label use [Unknown]
  - Stress [Unknown]
  - Agitation [Unknown]
  - Taste disorder [Unknown]
